FAERS Safety Report 19293399 (Version 1)
Quarter: 2021Q2

REPORT INFORMATION
  Report Type: Spontaneous
  Country: US (occurrence: US)
  Receive Date: 20210523
  Receipt Date: 20210523
  Transmission Date: 20210717
  Serious: No
  Sender: FDA-Public Use
  Company Number: None

PATIENT
  Age: 23 Year
  Sex: Male
  Weight: 69.75 kg

DRUGS (1)
  1. DEXEDRINE, DEXTROAMPHETAMINE [Suspect]
     Active Substance: DEXTROAMPHETAMINE
     Dosage: ?          QUANTITY:1 TABLET(S);?
     Route: 048
     Dates: start: 20210513

REACTIONS (4)
  - Feeling abnormal [None]
  - Product substitution issue [None]
  - Feeling jittery [None]
  - Somnolence [None]

NARRATIVE: CASE EVENT DATE: 20210513
